FAERS Safety Report 5692852-2 (Version None)
Quarter: 2008Q2

REPORT INFORMATION
  Report Type: 
  Country: None (occurrence: None)
  Receive Date: 20080401
  Receipt Date: 20080207
  Transmission Date: 20081010
  Serious: Yes (Hospitalization)
  Sender: FDA-Public Use
  Company Number: 2008AL001710

PATIENT
  Age: 85 Year
  Sex: Male

DRUGS (6)
  1. DIGOXIN [Suspect]
     Indication: ATRIAL FIBRILLATION
     Dosage: 125 UG; PO
     Route: 048
     Dates: end: 20080120
  2. WARFARIN SODIUM [Concomitant]
  3. FUROSEMIDE [Concomitant]
  4. TRANDOLAPRIL [Concomitant]
  5. CALCIPOTRIENE [Concomitant]
  6. BISOPROLOL FUMARATE [Concomitant]

REACTIONS (2)
  - BRADYCARDIA [None]
  - SYNCOPE [None]
